FAERS Safety Report 4307362-4 (Version None)
Quarter: 2004Q1

REPORT INFORMATION
  Report Type: 
  Country: None (occurrence: None)
  Receive Date: 20040226
  Receipt Date: 20040214
  Transmission Date: 20041129
  Serious: Yes (Other)
  Sender: FDA-Public Use
  Company Number: 2004009823

PATIENT
  Age: 68 Year
  Sex: Female
  Weight: 85.7298 kg

DRUGS (6)
  1. NEURONTIN [Suspect]
     Indication: DIABETIC NEUROPATHY
     Dosage: 900 MG (TID), ORAL
     Route: 048
  2. STARLIX [Concomitant]
  3. INSULIN [Concomitant]
  4. DOXEPIN HYDROCHLORIDE [Concomitant]
  5. ATENOLOL [Concomitant]
  6. SIMVASTATIN [Concomitant]

REACTIONS (3)
  - ARTHRITIS [None]
  - EXOSTOSIS [None]
  - PAIN EXACERBATED [None]
